FAERS Safety Report 8183860 (Version 2)
Quarter: 2014Q1

REPORT INFORMATION
  Report Type: Spontaneous
  Country: US (occurrence: US)
  Receive Date: 20111017
  Receipt Date: 20140203
  Transmission Date: 20141002
  Serious: No
  Sender: FDA-Public Use
  Company Number: US-JNJFOC-20111002624

PATIENT
  Age: 64 Year
  Sex: Male
  Weight: 106.14 kg

DRUGS (12)
  1. DURAGESIC [Suspect]
     Indication: PAIN
     Route: 062
     Dates: start: 201107, end: 2011
  2. DURAGESIC [Suspect]
     Indication: PAIN
     Route: 062
     Dates: start: 201109
  3. DURAGESIC [Suspect]
     Indication: PAIN
     Route: 062
     Dates: start: 201109
  4. DURAGESIC [Suspect]
     Indication: PAIN
     Route: 062
     Dates: start: 2011, end: 2011
  5. DURAGESIC [Suspect]
     Indication: PAIN
     Route: 062
     Dates: start: 2011, end: 2011
  6. DURAGESIC [Suspect]
     Indication: PAIN
     Route: 062
     Dates: start: 2011, end: 2011
  7. BENAZEPRIL [Concomitant]
     Indication: BLOOD PRESSURE
     Route: 048
     Dates: start: 2006
  8. FUROSEMIDE [Concomitant]
     Indication: FLUID RETENTION
     Route: 048
     Dates: start: 2006
  9. PLAVIX [Concomitant]
     Indication: ANTICOAGULANT THERAPY
     Route: 048
     Dates: start: 2008
  10. NEXIUM [Concomitant]
     Indication: GASTROOESOPHAGEAL REFLUX DISEASE
     Route: 048
  11. VENLAFAXINE [Concomitant]
     Indication: NERVOUSNESS
     Route: 048
  12. TOPIRAMATE [Concomitant]
     Indication: HEADACHE
     Route: 065
     Dates: start: 2008

REACTIONS (6)
  - Wrong technique in drug usage process [Not Recovered/Not Resolved]
  - Incorrect drug administration duration [Not Recovered/Not Resolved]
  - Drug effect decreased [Not Recovered/Not Resolved]
  - Pain [Not Recovered/Not Resolved]
  - Hangover [Not Recovered/Not Resolved]
  - Feeling abnormal [Not Recovered/Not Resolved]
